FAERS Safety Report 15082229 (Version 2)
Quarter: 2018Q3

REPORT INFORMATION
  Report Type: Spontaneous
  Country: CA (occurrence: CA)
  Receive Date: 20180628
  Receipt Date: 20180723
  Transmission Date: 20181010
  Serious: Yes (Other)
  Sender: FDA-Public Use
  Company Number: CA-COLGATE PALMOLIVE COMPANY-20180601455

PATIENT

DRUGS (10)
  1. ATARAX [Concomitant]
     Active Substance: HYDROXYZINE HYDROCHLORIDE
     Indication: PRODUCT USED FOR UNKNOWN INDICATION
     Route: 065
  2. AERIUS [Concomitant]
     Active Substance: DESLORATADINE
     Indication: PRODUCT USED FOR UNKNOWN INDICATION
     Route: 065
  3. BENADRYL [Concomitant]
     Active Substance: DIPHENHYDRAMINE HYDROCHLORIDE
     Indication: PRODUCT USED FOR UNKNOWN INDICATION
     Route: 065
  4. REACTINE                           /00884302/ [Concomitant]
     Active Substance: CETIRIZINE HYDROCHLORIDE
     Indication: PRODUCT USED FOR UNKNOWN INDICATION
     Route: 065
  5. XOLAIR [Suspect]
     Active Substance: OMALIZUMAB
     Dosage: UNK
     Dates: start: 201711
  6. CHLORHEXIDINE UNSPECIFIED [Suspect]
     Active Substance: CHLORHEXIDINE
     Indication: PRODUCT USED FOR UNKNOWN INDICATION
     Dosage: UNKNOWN DOSE
     Route: 065
  7. PREDNISONE. [Suspect]
     Active Substance: PREDNISONE
     Indication: PRODUCT USED FOR UNKNOWN INDICATION
     Route: 065
  8. XOLAIR [Suspect]
     Active Substance: OMALIZUMAB
     Indication: CHRONIC SPONTANEOUS URTICARIA
     Dosage: 150 MILLIGRAM
     Route: 058
     Dates: start: 20171031, end: 201801
  9. XOLAIR [Suspect]
     Active Substance: OMALIZUMAB
     Dosage: 150 MILLIGRAM
     Route: 058
     Dates: start: 20180104
  10. HYDROCORTISON                      /00028601/ [Concomitant]
     Active Substance: HYDROCORTISONE
     Indication: PRODUCT USED FOR UNKNOWN INDICATION
     Dosage: UNK
     Route: 065

REACTIONS (21)
  - Weight increased [Unknown]
  - Mobility decreased [Unknown]
  - Emotional distress [Unknown]
  - Anxiety [Unknown]
  - Dermatitis exfoliative generalised [Unknown]
  - Malaise [Unknown]
  - Oedema [Unknown]
  - Skin lesion [Recovering/Resolving]
  - Pruritus [Not Recovered/Not Resolved]
  - Insomnia [Unknown]
  - Dermatitis [Recovering/Resolving]
  - Erythema [Recovering/Resolving]
  - Pain [Not Recovered/Not Resolved]
  - Wound secretion [Unknown]
  - Irritability [Unknown]
  - Dry skin [Unknown]
  - Urticaria [Not Recovered/Not Resolved]
  - Sensitivity to weather change [Unknown]
  - Drug ineffective [Unknown]
  - Eczema [Recovering/Resolving]
  - Staphylococcal infection [Unknown]

NARRATIVE: CASE EVENT DATE: 20171207
